FAERS Safety Report 9979299 (Version 1)
Quarter: 2014Q1

REPORT INFORMATION
  Report Type: Report from Study
  Country: PR (occurrence: PR)
  Receive Date: 20140306
  Receipt Date: 20140306
  Transmission Date: 20141002
  Serious: No
  Sender: FDA-Public Use
  Company Number: PR-ABBVIE-13P-131-1175914-00

PATIENT
  Sex: Male
  Weight: 39.04 kg

DRUGS (3)
  1. HUMIRA [Suspect]
     Indication: CROHN^S DISEASE
     Route: 058
     Dates: start: 20130817
  2. FLAGYL [Concomitant]
     Indication: CROHN^S DISEASE
     Route: 048
  3. NEXIUM [Concomitant]
     Indication: GASTRIC DISORDER

REACTIONS (3)
  - Somnolence [Not Recovered/Not Resolved]
  - Injection site pain [Not Recovered/Not Resolved]
  - Injection site pain [Recovered/Resolved]
